FAERS Safety Report 9144377 (Version 2)
Quarter: 2013Q2

REPORT INFORMATION
  Report Type: Spontaneous
  Country: US (occurrence: US)
  Receive Date: 20130306
  Receipt Date: 20130409
  Transmission Date: 20140414
  Serious: No
  Sender: FDA-Public Use
  Company Number: US-TEVA-388989USA

PATIENT
  Age: 25 Year
  Sex: Female
  Weight: 58.11 kg

DRUGS (1)
  1. PLAN B ONE-STEP [Suspect]
     Indication: POST COITAL CONTRACEPTION
     Dosage: 1.5 MILLIGRAM DAILY;
     Route: 048
     Dates: start: 20130217, end: 20130217

REACTIONS (9)
  - Decreased appetite [Recovered/Resolved]
  - Chills [Recovered/Resolved]
  - Pyrexia [Recovered/Resolved]
  - Hypoaesthesia [Recovered/Resolved]
  - Thrombosis [Recovered/Resolved]
  - Renal pain [Recovered/Resolved]
  - Diarrhoea [Recovered/Resolved]
  - Metrorrhagia [Recovered/Resolved]
  - Vomiting [Recovered/Resolved]
